FAERS Safety Report 24850946 (Version 3)
Quarter: 2025Q2

REPORT INFORMATION
  Report Type: Report from Study
  Country: GB (occurrence: GB)
  Receive Date: 20250116
  Receipt Date: 20250422
  Transmission Date: 20250716
  Serious: Yes (Other)
  Sender: AMGEN
  Company Number: GB-002147023-NVSC2025GB004453

PATIENT
  Age: 56 Year
  Sex: Female

DRUGS (1)
  1. AIMOVIG [Suspect]
     Active Substance: ERENUMAB-AOOE
     Indication: Migraine prophylaxis
     Route: 058
     Dates: start: 202409

REACTIONS (8)
  - Hemiplegia [Unknown]
  - Visual impairment [Unknown]
  - Vomiting [Unknown]
  - Asthenia [Unknown]
  - Headache [Unknown]
  - Drug ineffective [Unknown]
  - Migraine [Unknown]
  - Illness [Unknown]
